FAERS Safety Report 5268605-6 (Version None)
Quarter: 2007Q1

REPORT INFORMATION
  Report Type: 
  Country: None (occurrence: None)
  Receive Date: 20070315
  Receipt Date: 20070315
  Transmission Date: 20070707
  Serious: Yes (Hospitalization)
  Sender: FDA-Public Use
  Company Number: None

PATIENT
  Age: 46 Year
  Sex: Female
  Weight: 99.7913 kg

DRUGS (2)
  1. AMBIEN [Suspect]
     Indication: INSOMNIA
     Dosage: 1 TABLET AT BEDTIME PO
     Route: 048
     Dates: start: 20061001, end: 20070226
  2. EFFEXOR [Suspect]
     Indication: DEPRESSION
     Dosage: 1 CAPSULE EVENING PO
     Route: 048
     Dates: start: 20061001, end: 20070226

REACTIONS (15)
  - ABNORMAL BEHAVIOUR [None]
  - ABNORMAL SLEEP-RELATED EVENT [None]
  - AMNESIA [None]
  - ASTHENIA [None]
  - BLOOD OESTROGEN DECREASED [None]
  - CRYING [None]
  - DELIRIUM TREMENS [None]
  - DRUG HYPERSENSITIVITY [None]
  - INAPPROPRIATE SCHEDULE OF DRUG ADMINISTRATION [None]
  - INCOHERENT [None]
  - OVERDOSE [None]
  - SLEEP DISORDER [None]
  - SLEEP TALKING [None]
  - SLEEP WALKING [None]
  - SPEECH DISORDER [None]
